FAERS Safety Report 10671971 (Version 2)
Quarter: 2015Q1

REPORT INFORMATION
  Report Type: Report from Study
  Country: US (occurrence: US)
  Receive Date: 20141223
  Receipt Date: 20150102
  Transmission Date: 20150720
  Serious: Yes (Hospitalization)
  Sender: FDA-Public Use
  Company Number: US-PURDUE PHARMA-USA-2014-0119927

PATIENT
  Sex: Female

DRUGS (2)
  1. OXYCONTIN [Suspect]
     Active Substance: OXYCODONE HYDROCHLORIDE
     Dosage: 80 MG, Q12H
     Route: 048
     Dates: start: 201112
  2. OXYCONTIN [Suspect]
     Active Substance: OXYCODONE HYDROCHLORIDE
     Indication: OSTEOARTHRITIS
     Dosage: 80 MG, TID
     Route: 048
     Dates: start: 201411, end: 20141226

REACTIONS (6)
  - Hypotension [Unknown]
  - Dehydration [Unknown]
  - Fall [Unknown]
  - Back pain [Unknown]
  - Fatigue [Unknown]
  - Muscle injury [Unknown]
